FAERS Safety Report 9127710 (Version 1)
Quarter: 2013Q1

REPORT INFORMATION
  Report Type: Spontaneous
  Country: US (occurrence: US)
  Receive Date: 20130228
  Receipt Date: 20130228
  Transmission Date: 20140127
  Serious: No
  Sender: FDA-Public Use
  Company Number: US-GLAXOSMITHKLINE-A0994185A

PATIENT
  Age: 35 Year
  Sex: Female

DRUGS (5)
  1. LAMOTRIGINE [Suspect]
     Indication: BIPOLAR DISORDER
     Dosage: 100MG PER DAY
     Route: 048
     Dates: start: 20120716, end: 20120821
  2. ATIVAN [Concomitant]
  3. PROTONIX [Concomitant]
  4. VILAZODONE [Concomitant]
  5. XYZAL [Concomitant]

REACTIONS (4)
  - Rash [Recovered/Resolved]
  - Urticaria [Unknown]
  - Pruritus [Unknown]
  - Dermatitis contact [Unknown]
